FAERS Safety Report 8600631 (Version 6)
Quarter: 2013Q2

REPORT INFORMATION
  Report Type: Spontaneous
  Country: FR (occurrence: FR)
  Receive Date: 20120606
  Receipt Date: 20130426
  Transmission Date: 20140414
  Serious: Yes (Hospitalization)
  Sender: FDA-Public Use
  Company Number: FR-SP-2012-05629

PATIENT
  Age: 67 Year
  Sex: Male
  Weight: 75 kg

DRUGS (1)
  1. IMMUCYST 81 MG [Suspect]
     Indication: BLADDER CANCER
     Route: 043
     Dates: start: 20120216, end: 20120419

REACTIONS (5)
  - Disseminated tuberculosis [Recovered/Resolved with Sequelae]
  - Pyrexia [Recovered/Resolved]
  - Pollakiuria [Unknown]
  - Cough [Unknown]
  - Myalgia [Unknown]
